FAERS Safety Report 9156731 (Version 1)
Quarter: 2013Q1

REPORT INFORMATION
  Report Type: Spontaneous
  Country: IT (occurrence: IT)
  Receive Date: 20130312
  Receipt Date: 20130312
  Transmission Date: 20140127
  Serious: Yes (Hospitalization)
  Sender: FDA-Public Use
  Company Number: IT-ELI_LILLY_AND_COMPANY-IT201303000053

PATIENT
  Age: 22 Year
  Sex: Female

DRUGS (3)
  1. PROZAC [Suspect]
     Dosage: 840 MG, UNKNOWN
     Dates: start: 20130128, end: 20130128
  2. PROPRANOLOL [Concomitant]
     Dosage: 1 DF, UNKNOWN
  3. GABAPENTIN [Concomitant]
     Dosage: 1 DF, UNKNOWN

REACTIONS (3)
  - Abdominal pain [Recovered/Resolved]
  - Nausea [Recovered/Resolved]
  - Overdose [Recovered/Resolved]
